FAERS Safety Report 8572407-2 (Version None)
Quarter: 2012Q3

REPORT INFORMATION
  Report Type: 
  Country: None (occurrence: None)
  Receive Date: 20120806
  Receipt Date: 20120801
  Transmission Date: 20120928
  Serious: Yes (Other)
  Sender: FDA-Public Use
  Company Number: CA-ABBOTT-11P-028-0841412-00

PATIENT
  Sex: Female

DRUGS (1)
  1. HUMIRA [Suspect]
     Indication: PSORIATIC ARTHROPATHY
     Route: 058
     Dates: start: 20091008

REACTIONS (4)
  - VISUAL IMPAIRMENT [None]
  - VISUAL ACUITY REDUCED [None]
  - VISION BLURRED [None]
  - LACRIMAL DUCT PROCEDURE [None]
